FAERS Safety Report 11050534 (Version 1)
Quarter: 2015Q2

REPORT INFORMATION
  Report Type: Spontaneous
  Country: FR (occurrence: FR)
  Receive Date: 20150421
  Receipt Date: 20150421
  Transmission Date: 20150821
  Serious: Yes (Hospitalization)
  Sender: FDA-Public Use
  Company Number: FR-ROCHE-1565455

PATIENT
  Age: 20 Year
  Sex: Female

DRUGS (6)
  1. ROACTEMRA [Suspect]
     Active Substance: TOCILIZUMAB
     Indication: RHEUMATOID ARTHRITIS
     Route: 041
     Dates: start: 20150206, end: 20150206
  2. FUMAFER [Concomitant]
     Active Substance: FERROUS FUMARATE
     Dosage: DAILY ONCE
     Route: 065
  3. FOLIC ACID. [Concomitant]
     Active Substance: FOLIC ACID
     Dosage: 3 TABLETS A WEEK
     Route: 065
  4. CORTANCYL [Concomitant]
     Active Substance: PREDNISONE
     Dosage: DAILY ONCE
     Route: 065
  5. CACIT (FRANCE) [Concomitant]
     Dosage: DAILY ONCE
     Route: 065
  6. METHOTREXATE [Concomitant]
     Active Substance: METHOTREXATE
     Route: 065

REACTIONS (3)
  - Hypotension [Recovered/Resolved]
  - Malaise [Recovered/Resolved]
  - Headache [Recovered/Resolved]

NARRATIVE: CASE EVENT DATE: 20150206
